FAERS Safety Report 11609094 (Version 4)
Quarter: 2025Q2

REPORT INFORMATION
  Report Type: Report from Study
  Country: US (occurrence: US)
  Receive Date: 20151007
  Receipt Date: 20250620
  Transmission Date: 20250716
  Serious: Yes (Other)
  Sender: JAZZ
  Company Number: US-JAZZ-2015-US-015855

PATIENT
  Sex: Female
  Weight: 68 kg

DRUGS (12)
  1. XYREM [Suspect]
     Active Substance: SODIUM OXYBATE
     Indication: Chronic fatigue syndrome
     Dosage: 3 GRAM, BID
     Route: 048
     Dates: start: 200708
  2. XYREM [Suspect]
     Active Substance: SODIUM OXYBATE
     Route: 048
  3. XYREM [Suspect]
     Active Substance: SODIUM OXYBATE
     Dosage: 4.5 GRAM, BID
     Route: 048
     Dates: start: 200811
  4. TOPAMAX [Concomitant]
     Active Substance: TOPIRAMATE
     Indication: Seizure
     Dosage: 300 MG, QD
  5. LAMICTAL [Concomitant]
     Active Substance: LAMOTRIGINE
     Indication: Seizure
  6. ZOLPIDEM TARTRATE [Concomitant]
     Active Substance: ZOLPIDEM TARTRATE
     Indication: Product used for unknown indication
     Dates: start: 20140221
  7. QUETIAPINE [Concomitant]
     Active Substance: QUETIAPINE
     Indication: Product used for unknown indication
  8. VYVANSE [Concomitant]
     Active Substance: LISDEXAMFETAMINE DIMESYLATE
     Indication: Product used for unknown indication
     Dates: start: 20151006
  9. VITAMIN C [Concomitant]
     Active Substance: ASCORBIC ACID
     Indication: Product used for unknown indication
     Dates: start: 20250331
  10. VITAMIN E [Concomitant]
     Active Substance: .ALPHA.-TOCOPHEROL
     Indication: Product used for unknown indication
     Dates: start: 20250331
  11. QUETIAPINE FUMARATE [Concomitant]
     Active Substance: QUETIAPINE FUMARATE
     Dates: start: 20250413
  12. CLONAZEPAM [Concomitant]
     Active Substance: CLONAZEPAM

REACTIONS (1)
  - Myoclonic epilepsy [Recovering/Resolving]

NARRATIVE: CASE EVENT DATE: 20140101
